FAERS Safety Report 8779580 (Version 2)
Quarter: 2013Q4

REPORT INFORMATION
  Report Type: Spontaneous
  Country: FR (occurrence: FR)
  Receive Date: 20120912
  Receipt Date: 20131022
  Transmission Date: 20140711
  Serious: Yes (Life-Threatening, Hospitalization)
  Sender: FDA-Public Use
  Company Number: FR-PFIZER INC-2012222824

PATIENT
  Age: 63 Year
  Sex: Male

DRUGS (1)
  1. CORDARONE [Suspect]
     Indication: ATRIAL FIBRILLATION
     Dosage: 100 MG EVERY OTHER DAY
     Route: 048
     Dates: start: 200906, end: 201201

REACTIONS (4)
  - Hyperthyroidism [Recovered/Resolved]
  - Cardiac failure [Recovered/Resolved]
  - Acute pulmonary oedema [Recovered/Resolved]
  - Respiratory distress [Recovered/Resolved]
